FAERS Safety Report 4877545-3 (Version None)
Quarter: 2006Q1

REPORT INFORMATION
  Report Type: 
  Country: None (occurrence: None)
  Receive Date: 20060109
  Receipt Date: 20051226
  Transmission Date: 20060701
  Serious: Yes (Life-Threatening)
  Sender: FDA-Public Use
  Company Number: 2005JP001318

PATIENT
  Age: 3 Year
  Sex: Male
  Weight: 14 kg

DRUGS (5)
  1. PROGRAF [Suspect]
     Indication: BONE MARROW TRANSPLANT
     Dosage: IV DRIP
     Route: 041
     Dates: start: 20040729, end: 20040828
  2. VEPSID (ETOPOSIDE) INJECTION [Suspect]
     Indication: NEUROBLASTOMA
     Dosage: 60 MG, UID/QD, IV NOS
     Route: 042
     Dates: start: 20040722, end: 20040726
  3. PARAPLATIN (CARBOPLATIN) INJECTION [Suspect]
     Indication: NEUROBLASTOMA
     Dosage: 180 MG, UID/QD, IV NOS
     Route: 042
     Dates: start: 20040722, end: 20040726
  4. ALKERAN (MELPHALAN) INJECTION [Suspect]
     Indication: NEUROBLASTOMA
     Dosage: 60 MG, UID/QD, IV NOS
     Route: 042
     Dates: start: 20040724, end: 20040725
  5. METHOTREXATE [Concomitant]

REACTIONS (8)
  - BONE MARROW FAILURE [None]
  - CARDIOMEGALY [None]
  - DIARRHOEA [None]
  - HISTIOCYTOSIS HAEMATOPHAGIC [None]
  - PERICARDIAL EFFUSION [None]
  - PYREXIA [None]
  - RASH ERYTHEMATOUS [None]
  - VENTRICULAR HYPOKINESIA [None]
